FAERS Safety Report 12945688 (Version 1)
Quarter: 2016Q4

REPORT INFORMATION
  Report Type: Report from Study
  Country: BR (occurrence: BR)
  Receive Date: 20161116
  Receipt Date: 20161116
  Transmission Date: 20170207
  Serious: Yes (Other)
  Sender: FDA-Public Use
  Company Number: BR-ROCHE-1854733

PATIENT
  Sex: Female
  Weight: 36 kg

DRUGS (2)
  1. LUCENTIS [Suspect]
     Active Substance: RANIBIZUMAB
     Indication: VISUAL ACUITY REDUCED
     Dosage: QMO (1 AMPOULE IN EACH EYE A MONTH)
     Route: 065
  2. LUCENTIS [Suspect]
     Active Substance: RANIBIZUMAB
     Route: 065
     Dates: start: 2011

REACTIONS (11)
  - Nerve injury [Recovered/Resolved with Sequelae]
  - Pelvic fracture [Recovered/Resolved with Sequelae]
  - Foot fracture [Recovered/Resolved with Sequelae]
  - Lower limb fracture [Recovered/Resolved with Sequelae]
  - Diabetes mellitus [Recovering/Resolving]
  - Diabetic retinopathy [Unknown]
  - Abnormal behaviour [Unknown]
  - Accident [Unknown]
  - Body height decreased [Unknown]
  - Visual acuity reduced [Recovered/Resolved with Sequelae]
  - Hip fracture [Recovered/Resolved with Sequelae]
